FAERS Safety Report 8839443 (Version 1)
Quarter: 2012Q4

REPORT INFORMATION
  Report Type: Spontaneous
  Country: US (occurrence: None)
  Receive Date: 20121012
  Receipt Date: 20121012
  Transmission Date: 20130627
  Serious: Yes (Disabling, Other)
  Sender: FDA-Public Use
  Company Number: None

PATIENT
  Age: 52 Year
  Sex: Female
  Weight: 92.99 kg

DRUGS (2)
  1. TRIAMCINOLONE ACETONIDE [Suspect]
     Indication: GROIN PAIN
     Dates: start: 20120509, end: 20120509
  2. TRIAMCINOLONE ACETONIDE [Suspect]
     Indication: INVESTIGATION
     Dates: start: 20120509, end: 20120509

REACTIONS (4)
  - Osteonecrosis [None]
  - Economic problem [None]
  - Activities of daily living impaired [None]
  - Pain [None]
